FAERS Safety Report 8386922-8 (Version None)
Quarter: 2012Q2

REPORT INFORMATION
  Report Type: 
  Country: None (occurrence: None)
  Receive Date: 20120525
  Receipt Date: 20120515
  Transmission Date: 20120825
  Serious: Yes (Death, Life-Threatening, Hospitalization, Other)
  Sender: FDA-Public Use
  Company Number: US-MYLANLABS-2009AC000126

PATIENT
  Sex: Male
  Weight: 79.38 kg

DRUGS (18)
  1. VIAGRA [Concomitant]
  2. CLORAZEPATE DIPOTASSIUM [Concomitant]
  3. MELOXICAM [Concomitant]
  4. BETAPACE [Concomitant]
  5. HYDROCODONE BITARTRATE [Concomitant]
  6. WARFARIN SODIUM [Concomitant]
  7. RANITIDINE [Concomitant]
  8. TRIAMTERENE AND HYDROCHLOROTHIAZIDE [Concomitant]
  9. TRIAMTERENE [Concomitant]
  10. ASTELIN [Concomitant]
  11. MIRTAZAPINE [Concomitant]
  12. SOTALOL HCL [Concomitant]
  13. LEVOTHYROXINE SODIUM [Concomitant]
  14. NITROL [Concomitant]
  15. SOTALOL HCL [Concomitant]
  16. DIGOXIN [Suspect]
     Indication: CARDIOMEGALY
     Route: 048
     Dates: start: 19900717, end: 20070612
  17. RYNEZE [Concomitant]
  18. ESTROGENS CONJUGATED [Concomitant]

REACTIONS (64)
  - INJURY [None]
  - JOINT EFFUSION [None]
  - CARDIOMEGALY [None]
  - FATIGUE [None]
  - UPPER RESPIRATORY TRACT INFECTION [None]
  - CORONARY ARTERY DISEASE [None]
  - COLOSTOMY [None]
  - CORNEAL TRANSPLANT [None]
  - EXERCISE ELECTROCARDIOGRAM ABNORMAL [None]
  - OEDEMA PERIPHERAL [None]
  - PULSE ABSENT [None]
  - MUSCULAR WEAKNESS [None]
  - BRONCHITIS [None]
  - ASTHENIA [None]
  - CEREBRAL ATROPHY [None]
  - COLON CANCER [None]
  - PULSELESS ELECTRICAL ACTIVITY [None]
  - ANAEMIA [None]
  - ANGIOPLASTY [None]
  - COLONOSCOPY ABNORMAL [None]
  - INTERVERTEBRAL DISC OPERATION [None]
  - SPINAL OSTEOARTHRITIS [None]
  - X-RAY ABNORMAL [None]
  - ECONOMIC PROBLEM [None]
  - DEATH [None]
  - VENTRICULAR FIBRILLATION [None]
  - ACTIVITIES OF DAILY LIVING IMPAIRED [None]
  - ANGINA PECTORIS [None]
  - CHEMOTHERAPY [None]
  - DYSPNOEA [None]
  - NEPHROLITHIASIS [None]
  - CIRCULATORY COLLAPSE [None]
  - CARDIAC ARREST [None]
  - COUGH [None]
  - CAROTID ARTERY STENOSIS [None]
  - ILL-DEFINED DISORDER [None]
  - BACK PAIN [None]
  - HYPOAESTHESIA [None]
  - INTERVERTEBRAL DISC PROTRUSION [None]
  - ATRIAL FIBRILLATION [None]
  - COLECTOMY [None]
  - NUCLEAR MAGNETIC RESONANCE IMAGING ABNORMAL [None]
  - RIB FRACTURE [None]
  - LACERATION [None]
  - VENTRICULAR TACHYCARDIA [None]
  - ARTHRALGIA [None]
  - NECK PAIN [None]
  - PAIN IN EXTREMITY [None]
  - HEADACHE [None]
  - CHEST DISCOMFORT [None]
  - ECHOCARDIOGRAM ABNORMAL [None]
  - SNEEZING [None]
  - RESPIRATORY TRACT CONGESTION [None]
  - ABDOMINAL PAIN [None]
  - CARDIOVERSION [None]
  - INTERVERTEBRAL DISC DEGENERATION [None]
  - OSTEOARTHRITIS [None]
  - MYOCARDIAL INFARCTION [None]
  - OROPHARYNGEAL PAIN [None]
  - RESUSCITATION [None]
  - MYOCARDIAL ISCHAEMIA [None]
  - CARDIAC STRESS TEST ABNORMAL [None]
  - HYDROCELE [None]
  - HYPERTENSION [None]
